FAERS Safety Report 4456747-4 (Version None)
Quarter: 2004Q3

REPORT INFORMATION
  Report Type: 
  Country: None (occurrence: None)
  Receive Date: 20040921
  Receipt Date: 20040914
  Transmission Date: 20050211
  Serious: Yes (Hospitalization)
  Sender: FDA-Public Use
  Company Number: 2004CG01814

PATIENT
  Age: 82 Year
  Sex: Male

DRUGS (10)
  1. TENORMIN [Suspect]
  2. ASPEGIC /FRA/ [Suspect]
     Dosage: 100 MG QD
  3. FLUDEX [Suspect]
     Dosage: 1 DF QD
  4. TAHOR [Suspect]
  5. CORVASAL [Suspect]
  6. TRIATEC [Suspect]
     Dosage: 20 MG QD
  7. ZYLORIC ^GLAXO WELLCOME^ [Suspect]
  8. PROSCAR [Suspect]
  9. FORLAX [Suspect]
  10. MAXEPA [Suspect]

REACTIONS (1)
  - RECTAL HAEMORRHAGE [None]
